FAERS Safety Report 8632927 (Version 2)
Quarter: 2013Q1

REPORT INFORMATION
  Report Type: Spontaneous
  Country: US (occurrence: US)
  Receive Date: 20120625
  Receipt Date: 20130225
  Transmission Date: 20140127
  Serious: Yes (Other)
  Sender: FDA-Public Use
  Company Number: US-ROCHE-1078527

PATIENT
  Age: 62 Year
  Sex: Female

DRUGS (5)
  1. BONIVA [Suspect]
     Indication: OSTEOPOROSIS
     Route: 065
     Dates: start: 200601, end: 201010
  2. BONIVA [Suspect]
     Route: 065
     Dates: start: 2004
  3. FOSAMAX [Suspect]
     Indication: OSTEOPOROSIS
     Route: 065
     Dates: start: 1995
  4. FOSAMAX [Suspect]
     Route: 065
     Dates: start: 200210, end: 200512
  5. FOSAMAX [Suspect]
     Route: 065
     Dates: start: 2010

REACTIONS (8)
  - Femur fracture [Unknown]
  - Depression [Unknown]
  - Bone disorder [Unknown]
  - Stress fracture [Unknown]
  - Anxiety [Unknown]
  - Emotional distress [Unknown]
  - Head injury [Unknown]
  - Hypothyroidism [Unknown]
